FAERS Safety Report 17802736 (Version 5)
Quarter: 2020Q4

REPORT INFORMATION
  Report Type: Spontaneous
  Country: JP (occurrence: JP)
  Receive Date: 20200519
  Receipt Date: 20201012
  Transmission Date: 20210113
  Serious: Yes (Life-Threatening, Hospitalization, Disabling, Other)
  Sender: FDA-Public Use
  Company Number: JP-B.I. PHARMACEUTICALS,INC./RIDGEFIELD-2020-NB-023968

PATIENT
  Age: 94 Year
  Sex: Female

DRUGS (1)
  1. PRAZAXA [Suspect]
     Active Substance: DABIGATRAN ETEXILATE MESYLATE
     Indication: ATRIAL FIBRILLATION
     Route: 048
     Dates: end: 20200502

REACTIONS (4)
  - Retroperitoneal haematoma [Recovered/Resolved]
  - Shock haemorrhagic [Recovered/Resolved]
  - Cerebral infarction [Recovering/Resolving]
  - Pelvic fracture [Unknown]

NARRATIVE: CASE EVENT DATE: 20200502
